FAERS Safety Report 21852965 (Version 3)
Quarter: 2023Q1

REPORT INFORMATION
  Report Type: Report from Study
  Country: CA (occurrence: CA)
  Receive Date: 20230112
  Receipt Date: 20230223
  Transmission Date: 20230417
  Serious: Yes (Other)
  Sender: FDA-Public Use
  Company Number: CA-TAKEDA-2023TUS002894

PATIENT
  Age: 20 Year
  Sex: Female

DRUGS (4)
  1. VEDOLIZUMAB [Suspect]
     Active Substance: VEDOLIZUMAB
     Indication: Colitis ulcerative
     Dosage: 300 MILLIGRAM
     Route: 042
     Dates: start: 20210921
  2. VEDOLIZUMAB [Suspect]
     Active Substance: VEDOLIZUMAB
     Dosage: 300 MILLIGRAM, Q4WEEKS
     Route: 042
     Dates: start: 20230220
  3. MESALAMINE [Concomitant]
     Active Substance: MESALAMINE
     Dosage: 1200 MILLIGRAM
     Dates: start: 201805
  4. IMURAN [Concomitant]
     Active Substance: AZATHIOPRINE
     Dosage: 50 MILLIGRAM, TID
     Dates: start: 201805

REACTIONS (3)
  - Colitis ulcerative [Unknown]
  - Drug level below therapeutic [Unknown]
  - Off label use [Unknown]

NARRATIVE: CASE EVENT DATE: 20230220
